FAERS Safety Report 7536286-4 (Version None)
Quarter: 2011Q2

REPORT INFORMATION
  Report Type: 
  Country: None (occurrence: None)
  Receive Date: 20110608
  Receipt Date: 20110608
  Transmission Date: 20111010
  Serious: No
  Sender: FDA-Public Use
  Company Number: None

PATIENT
  Sex: Female
  Weight: 92.9874 kg

DRUGS (3)
  1. HYDROCODONE BITARTRATE + ACETAMINOPHEN [Suspect]
     Dosage: 4 TIMES DAILY ORAL
     Route: 048
  2. CITALOPRAM HYDROBROMIDE [Suspect]
     Indication: DEPRESSION
     Dosage: 20MG DAILY ORAL
     Route: 048
     Dates: start: 20110321, end: 20110506
  3. TRAMADOL HCL [Suspect]
     Indication: JOINT SURGERY
     Dosage: 200 MG EVERY 4 HRS 4 X DAILY ORAL
     Route: 048

REACTIONS (10)
  - MUSCULAR WEAKNESS [None]
  - HAEMATOCHEZIA [None]
  - ASTHENIA [None]
  - PALPITATIONS [None]
  - PYREXIA [None]
  - TREMOR [None]
  - YAWNING [None]
  - MUSCLE TWITCHING [None]
  - DYSURIA [None]
  - HYPERHIDROSIS [None]
